FAERS Safety Report 13938159 (Version 1)
Quarter: 2017Q3

REPORT INFORMATION
  Report Type: Report from Study
  Country: NL (occurrence: NL)
  Receive Date: 20170905
  Receipt Date: 20170905
  Transmission Date: 20171127
  Serious: Yes (Other)
  Sender: FDA-Public Use
  Company Number: PHHY2017NL127540

PATIENT
  Age: 70 Year
  Sex: Female

DRUGS (4)
  1. SIGNIFOR LAR [Suspect]
     Active Substance: PASIREOTIDE
     Dosage: UNK
     Route: 030
     Dates: start: 20170828
  2. SIGNIFOR LAR [Suspect]
     Active Substance: PASIREOTIDE
     Dosage: UNK
     Route: 030
     Dates: start: 20160704
  3. SIGNIFOR LAR [Suspect]
     Active Substance: PASIREOTIDE
     Dosage: UNK
     Route: 030
     Dates: start: 20170731
  4. SIGNIFOR LAR [Suspect]
     Active Substance: PASIREOTIDE
     Indication: ACROMEGALY
     Dosage: 40 MG/2 ML, 1X PER 4 WEEKS
     Route: 030

REACTIONS (3)
  - Hypothyroidism [Unknown]
  - Hypovitaminosis [Unknown]
  - Pain in extremity [Recovering/Resolving]

NARRATIVE: CASE EVENT DATE: 20170817
